FAERS Safety Report 8216667-6 (Version None)
Quarter: 2012Q1

REPORT INFORMATION
  Report Type: 
  Country: None (occurrence: None)
  Receive Date: 20120316
  Receipt Date: 20120306
  Transmission Date: 20120608
  Serious: Yes (Other)
  Sender: FDA-Public Use
  Company Number: ES-ABBOTT-12P-144-0909275-00

PATIENT
  Age: 43 Year
  Sex: Male

DRUGS (4)
  1. ADALIMUMAB [Suspect]
     Indication: CROHN'S DISEASE
     Dosage: LOAD DOSE
     Route: 058
     Dates: start: 20070101
  2. ADALIMUMAB [Suspect]
     Route: 058
  3. ADALIMUMAB [Suspect]
     Route: 058
     Dates: end: 20090101
  4. CORTICOIDS [Concomitant]
     Indication: CROHN'S DISEASE
     Dates: start: 20030101

REACTIONS (3)
  - RASH PRURITIC [None]
  - DRUG ERUPTION [None]
  - MALAISE [None]
